FAERS Safety Report 5911323-9 (Version None)
Quarter: 2008Q4

REPORT INFORMATION
  Report Type: 
  Country: None (occurrence: None)
  Receive Date: 20081007
  Receipt Date: 20081001
  Transmission Date: 20090506
  Serious: No
  Sender: FDA-Public Use
  Company Number: US-B.I. PHARMACEUTICALS,INC./RIDGEFIELD-2008-BP-12797BP

PATIENT
  Sex: Female

DRUGS (3)
  1. SPIRIVA [Suspect]
     Indication: DYSPNOEA
     Dosage: 18MCG
     Route: 055
     Dates: start: 20080414, end: 20080415
  2. LISINOPRIL [Concomitant]
     Indication: HYPERTENSION
  3. ALBUTEROL [Concomitant]
     Indication: DYSPNOEA

REACTIONS (2)
  - CHEST PAIN [None]
  - THROAT IRRITATION [None]
